FAERS Safety Report 21239357 (Version 3)
Quarter: 2022Q3

REPORT INFORMATION
  Report Type: Report from Study
  Country: AT (occurrence: AT)
  Receive Date: 20220822
  Receipt Date: 20220901
  Transmission Date: 20221027
  Serious: Yes (Hospitalization)
  Sender: FDA-Public Use
  Company Number: AT-NOVARTISPH-NVSC2022AT182896

PATIENT
  Age: 56 Year
  Sex: Male
  Weight: 87.6 kg

DRUGS (20)
  1. SECUKINUMAB [Suspect]
     Active Substance: SECUKINUMAB
     Indication: Hidradenitis
     Dosage: UNK
     Route: 058
     Dates: start: 20210107
  2. SECUKINUMAB [Suspect]
     Active Substance: SECUKINUMAB
     Indication: Hidradenitis
     Dosage: 2 ML, Q2W
     Route: 058
     Dates: start: 20220107, end: 20220804
  3. MEFENAMIC ACID [Concomitant]
     Active Substance: MEFENAMIC ACID
     Indication: Swollen tongue
     Dosage: UNK
     Route: 065
     Dates: start: 20191220
  4. MEFENAMIC ACID [Concomitant]
     Active Substance: MEFENAMIC ACID
     Indication: Arthralgia
     Dosage: UNK
     Route: 065
     Dates: start: 20200424
  5. MEFENAMIC ACID [Concomitant]
     Active Substance: MEFENAMIC ACID
     Indication: Hidradenitis
  6. MEFENAMIC ACID [Concomitant]
     Active Substance: MEFENAMIC ACID
     Indication: Intervertebral disc protrusion
  7. DIFLUCAN [Concomitant]
     Active Substance: FLUCONAZOLE
     Indication: Hypersensitivity
     Dosage: UNK
     Route: 065
     Dates: start: 20220411
  8. CLARITHROMYCIN [Concomitant]
     Active Substance: CLARITHROMYCIN
     Indication: Bronchitis
     Dosage: UNK
     Route: 065
     Dates: start: 20220516
  9. MUNDISAL [Concomitant]
     Indication: Swollen tongue
     Dosage: UNK
     Route: 065
     Dates: start: 20220721
  10. GENGIGEL [Concomitant]
     Indication: Swollen tongue
     Dosage: UNK
     Route: 065
     Dates: start: 20220721
  11. MYCOSTATIN [Concomitant]
     Active Substance: NYSTATIN
     Indication: Candida infection
     Dosage: UNK
     Route: 065
     Dates: start: 20220718
  12. IBUPROFEN [Concomitant]
     Active Substance: IBUPROFEN
     Indication: Hidradenitis
     Dosage: UNK
     Route: 065
     Dates: start: 20191219
  13. METAMIZOLE [Concomitant]
     Active Substance: METAMIZOLE
     Indication: Intervertebral disc protrusion
     Dosage: UNK
     Route: 065
     Dates: start: 20201220
  14. BETAISODONA [Concomitant]
     Active Substance: POVIDONE-IODINE
     Indication: Hidradenitis
     Dosage: UNK
     Route: 065
     Dates: start: 201811
  15. BETAISODONA [Concomitant]
     Active Substance: POVIDONE-IODINE
     Indication: Hidradenitis
     Dosage: UNK
     Route: 065
     Dates: start: 20220203
  16. CALCIUM\CARBOXYMETHYLCELLULOSE\DEVICE\MAGNESIUM\POTASSIUM\SODIUM CL\SO [Concomitant]
     Active Substance: CALCIUM\CARBOXYMETHYLCELLULOSE\DEVICE\MAGNESIUM\POTASSIUM\SODIUM CL\SORBITOL
     Indication: Hypersensitivity
     Dosage: UNK
     Route: 065
     Dates: start: 20220228
  17. PANTOPRAZOLE SODIUM [Concomitant]
     Active Substance: PANTOPRAZOLE SODIUM
     Indication: General physical condition
     Dosage: UNK
     Route: 065
     Dates: start: 20220426
  18. DESLORATADINE [Concomitant]
     Active Substance: DESLORATADINE
     Indication: Hypersensitivity
     Dosage: UNK
     Route: 065
     Dates: start: 20220428
  19. HALCION [Concomitant]
     Active Substance: TRIAZOLAM
     Indication: Sleep disorder
     Dosage: UNK
     Route: 065
     Dates: start: 20220812, end: 20220812
  20. GLANDOMED [Concomitant]
     Indication: Burning mouth syndrome
     Dosage: UNK
     Route: 065
     Dates: start: 20220812

REACTIONS (1)
  - Candida infection [Recovered/Resolved]

NARRATIVE: CASE EVENT DATE: 20220812
